FAERS Safety Report 6904141-6 (Version None)
Quarter: 2010Q3

REPORT INFORMATION
  Report Type: 
  Country: None (occurrence: None)
  Receive Date: 20100804
  Receipt Date: 20090319
  Transmission Date: 20110219
  Serious: No
  Sender: FDA-Public Use
  Company Number: US-PFIZER INC-2009158657

PATIENT
  Sex: Female
  Weight: 57.6 kg

DRUGS (8)
  1. LYRICA [Suspect]
     Indication: BACK PAIN
     Dosage: 50 MG, 1X/DAY
     Dates: start: 20090113
  2. VICODIN [Suspect]
     Indication: BACK PAIN
     Dosage: UNK
  3. INOSITOL [Concomitant]
     Dosage: UNK
  4. CHONDROITIN/GLUCOSAMINE [Concomitant]
     Dosage: UNK
  5. ZANTAC [Concomitant]
     Dosage: UNK
  6. MULTI-VITAMINS [Concomitant]
     Dosage: UNK
  7. XANAX [Concomitant]
     Dosage: UNK
  8. VALIUM [Concomitant]
     Dosage: UNK

REACTIONS (1)
  - EUPHORIC MOOD [None]
